FAERS Safety Report 7817988 (Version 2)
Quarter: 2015Q1

REPORT INFORMATION
  Report Type: Report from Study
  Country: FR (occurrence: FR)
  Receive Date: 20110217
  Receipt Date: 20150304
  Transmission Date: 20150721
  Serious: Yes (Hospitalization, Other)
  Sender: FDA-Public Use
  Company Number: PHHO2010FR19677

PATIENT
  Age: 53 Year
  Sex: Male
  Weight: 84 kg

DRUGS (10)
  1. COVERAM [Concomitant]
     Active Substance: AMLODIPINE\PERINDOPRIL
     Indication: PRODUCT USED FOR UNKNOWN INDICATION
     Route: 065
  2. MYCOPHENOLATE MOFETIL. [Suspect]
     Active Substance: MYCOPHENOLATE MOFETIL
     Indication: HEART TRANSPLANT
     Dosage: 2000 MG, UNK
     Route: 065
     Dates: start: 20101221
  3. CARDENSIEL [Concomitant]
     Active Substance: BISOPROLOL FUMARATE
     Indication: PRODUCT USED FOR UNKNOWN INDICATION
     Route: 065
  4. KEPPRA [Concomitant]
     Active Substance: LEVETIRACETAM
     Indication: PRODUCT USED FOR UNKNOWN INDICATION
     Route: 065
  5. CRESTOR [Concomitant]
     Active Substance: ROSUVASTATIN CALCIUM
     Indication: PRODUCT USED FOR UNKNOWN INDICATION
     Route: 065
  6. SOLUPRED [Concomitant]
     Active Substance: PREDNISOLONE
     Indication: PRODUCT USED FOR UNKNOWN INDICATION
     Route: 065
  7. EVEROLIMUS [Suspect]
     Active Substance: EVEROLIMUS
     Indication: HEART TRANSPLANT
     Dosage: 0.75 MG, BID
     Route: 048
     Dates: start: 20101109, end: 20101218
  8. NEORAL [Suspect]
     Active Substance: CYCLOSPORINE
     Indication: TRANSPLANT REJECTION
     Dosage: 75 MG, QD
     Route: 048
     Dates: start: 20070108
  9. NEXIUM [Concomitant]
     Active Substance: ESOMEPRAZOLE MAGNESIUM
     Indication: PRODUCT USED FOR UNKNOWN INDICATION
     Route: 065
  10. KARDEGIC [Concomitant]
     Active Substance: ASPIRIN LYSINE
     Indication: PRODUCT USED FOR UNKNOWN INDICATION
     Route: 065

REACTIONS (5)
  - Tongue oedema [Recovered/Resolved]
  - Angioedema [Recovered/Resolved]
  - Lip oedema [Recovered/Resolved]
  - Face oedema [Recovered/Resolved]
  - Angioedema [Recovered/Resolved]

NARRATIVE: CASE EVENT DATE: 201012
